FAERS Safety Report 20624803 (Version 1)
Quarter: 2022Q1

REPORT INFORMATION
  Report Type: Spontaneous
  Country: US (occurrence: US)
  Receive Date: 20220323
  Receipt Date: 20220323
  Transmission Date: 20220424
  Serious: No
  Sender: FDA-Public Use
  Company Number: US-AMGEN-USASP2022048246

PATIENT
  Sex: Female

DRUGS (2)
  1. OTEZLA [Suspect]
     Active Substance: APREMILAST
     Indication: Psoriasis
     Dosage: 30 MILLIGRAM, BID
     Route: 048
     Dates: start: 20210406
  2. OTEZLA [Suspect]
     Active Substance: APREMILAST
     Dosage: UNK (TAKING ONLY 1 TAB SOME DAYS VS THE 2 TABS)
     Route: 048

REACTIONS (3)
  - Psoriasis [Unknown]
  - Pain [Unknown]
  - Intentional product misuse [Unknown]
